FAERS Safety Report 7339256-4 (Version None)
Quarter: 2011Q1

REPORT INFORMATION
  Report Type: 
  Country: None (occurrence: None)
  Receive Date: 20110308
  Receipt Date: 20110224
  Transmission Date: 20110831
  Serious: Yes (Hospitalization)
  Sender: FDA-Public Use
  Company Number: US-ELI_LILLY_AND_COMPANY-US201012002280

PATIENT
  Sex: Female
  Weight: 82.54 kg

DRUGS (17)
  1. DILTIAZEM [Concomitant]
     Dosage: 120 MG, 2/D
  2. NASONEX [Concomitant]
  3. MAGNESIUM [Concomitant]
     Dosage: 1 D/F, 2/D
  4. REFRESH TEARS [Concomitant]
  5. FORTEO [Suspect]
     Indication: OSTEOPOROSIS
     Dosage: 20 UG, DAILY (1/D)
     Route: 058
     Dates: start: 20101104, end: 20101117
  6. BENADRYL [Concomitant]
  7. MULTI-VITAMIN [Concomitant]
  8. PROZAC [Concomitant]
  9. LEVOTHYROXINE SODIUM [Concomitant]
     Dosage: 125 UG, UNK
  10. VITAMIN D [Concomitant]
     Dosage: 3 D/F, DAILY (1/D)
  11. PRILOSEC [Concomitant]
  12. CALCIUM [Concomitant]
     Dosage: 3 D/F, DAILY (1/D)
  13. CALCIUM [Concomitant]
     Dosage: 500 MG, 3/D
  14. LISINOPRIL AND HYDROCHLOROTHIAZIDE [Concomitant]
  15. PLAVIX [Concomitant]
  16. CATAPRES /USA/ [Concomitant]
     Dosage: UNK, WEEKLY (1/W)
  17. NITROGLYCERIN [Concomitant]

REACTIONS (7)
  - ELECTROLYTE IMBALANCE [None]
  - BLOOD CREATININE INCREASED [None]
  - BLOOD THYROID STIMULATING HORMONE INCREASED [None]
  - MENTAL STATUS CHANGES [None]
  - HYPERCALCAEMIA [None]
  - FALL [None]
  - BLOOD UREA INCREASED [None]
